FAERS Safety Report 16154524 (Version 2)
Quarter: 2020Q1

REPORT INFORMATION
  Report Type: Spontaneous
  Country: US (occurrence: US)
  Receive Date: 20190403
  Receipt Date: 20200311
  Transmission Date: 20200409
  Serious: Yes (Other)
  Sender: FDA-Public Use
  Company Number: US-ASTRAZENECA-2019SE47911

PATIENT
  Age: 19791 Day

DRUGS (11)
  1. PROTONIX [Suspect]
     Active Substance: PANTOPRAZOLE SODIUM
     Route: 065
  2. LOSARTAN/HCTZ [Concomitant]
     Active Substance: HYDROCHLOROTHIAZIDE\LOSARTAN
  3. NIFEDIPINE. [Concomitant]
     Active Substance: NIFEDIPINE
  4. NEXIUM [Suspect]
     Active Substance: ESOMEPRAZOLE MAGNESIUM
     Route: 048
     Dates: start: 20120727
  5. LISINOPRIL. [Concomitant]
     Active Substance: LISINOPRIL
  6. NOVOLIN N [Concomitant]
     Active Substance: INSULIN HUMAN
  7. LEVOTHYROXINE. [Concomitant]
     Active Substance: LEVOTHYROXINE
  8. METOPROLOL. [Concomitant]
     Active Substance: METOPROLOL
  9. ZETIA [Concomitant]
     Active Substance: EZETIMIBE
  10. TRILIPIX [Concomitant]
     Active Substance: FENOFIBRIC ACID
  11. PREVACID [Suspect]
     Active Substance: LANSOPRAZOLE
     Route: 065

REACTIONS (2)
  - Renal injury [Unknown]
  - Chronic kidney disease [Unknown]

NARRATIVE: CASE EVENT DATE: 20160107
